FAERS Safety Report 7909129-4 (Version None)
Quarter: 2011Q4

REPORT INFORMATION
  Report Type: 
  Country: None (occurrence: None)
  Receive Date: 20111111
  Receipt Date: 20101022
  Transmission Date: 20120403
  Serious: No
  Sender: FDA-Public Use
  Company Number: US-GLAXOSMITHKLINE-A0888322A

PATIENT
  Age: 69 Year
  Sex: Female

DRUGS (2)
  1. THYROID TAB [Concomitant]
  2. CARVEDILOL [Suspect]
     Indication: VIRAL CARDIOMYOPATHY
     Dosage: 25MG TWICE PER DAY
     Route: 048
     Dates: start: 20090401, end: 20100401

REACTIONS (3)
  - DRUG INEFFECTIVE [None]
  - CARDIOMEGALY [None]
  - EJECTION FRACTION [None]
